FAERS Safety Report 11119109 (Version 1)
Quarter: 2015Q2

REPORT INFORMATION
  Report Type: Spontaneous
  Country: BR (occurrence: BR)
  Receive Date: 20150518
  Receipt Date: 20150518
  Transmission Date: 20150821
  Serious: Yes (Other)
  Sender: FDA-Public Use
  Company Number: BR-009507513-1505BRA004390

PATIENT
  Age: 48 Year
  Sex: Female
  Weight: 77 kg

DRUGS (7)
  1. NOVOLIN R [Concomitant]
     Active Substance: INSULIN HUMAN
     Indication: DIABETES MELLITUS
     Dosage: 40 IU, TID,STRENGTH: 40IU
     Dates: start: 1992
  2. SIMVASTATIN. [Suspect]
     Active Substance: SIMVASTATIN
     Indication: BLOOD TRIGLYCERIDES INCREASED
     Dosage: 1 DF, QD; STRENGTH: 1 TABLET
     Route: 048
     Dates: start: 1994
  3. NATRILIX [Concomitant]
     Active Substance: INDAPAMIDE
     Dosage: 1 DF, QD
     Dates: start: 1994
  4. LOSARTAN POTASSIUM. [Concomitant]
     Active Substance: LOSARTAN POTASSIUM
     Indication: HYPERTENSION
     Dosage: 3 DF, QD; STRENGHT: 2 TABLET
     Dates: start: 2014
  5. LOSARTAN POTASSIUM. [Concomitant]
     Active Substance: LOSARTAN POTASSIUM
     Indication: HYPERTENSION
     Dosage: 2 DF, QD; STRENGHT: 3 TABLET
     Route: 048
     Dates: start: 1994, end: 2014
  6. NOVOLIN N [Concomitant]
     Active Substance: INSULIN HUMAN
     Indication: DIABETES MELLITUS
     Dosage: 4 IU, BIDSTRENGTH: 4 IU
     Dates: start: 1992
  7. VALIUM [Concomitant]
     Active Substance: DIAZEPAM
     Dosage: UNK, PRN
     Dates: start: 1977

REACTIONS (7)
  - Intraocular pressure decreased [Unknown]
  - Retinal detachment [Recovered/Resolved]
  - Visual acuity reduced [Unknown]
  - Femur fracture [Recovered/Resolved]
  - Intraocular pressure test abnormal [Not Recovered/Not Resolved]
  - Eye haemorrhage [Unknown]
  - Accident [Unknown]

NARRATIVE: CASE EVENT DATE: 1996
